FAERS Safety Report 6133568-8 (Version None)
Quarter: 2009Q1

REPORT INFORMATION
  Report Type: 
  Country: None (occurrence: None)
  Receive Date: 20090326
  Receipt Date: 20090316
  Transmission Date: 20090719
  Serious: Yes (Hospitalization)
  Sender: FDA-Public Use
  Company Number: DE-PURDUE-DEU_2009_0005100

PATIENT
  Age: 70 Year
  Sex: Male
  Weight: 49 kg

DRUGS (6)
  1. THEOPHYLLINE [Suspect]
     Indication: CHRONIC OBSTRUCTIVE PULMONARY DISEASE
     Dosage: 150 MG, BID
     Route: 048
     Dates: end: 20090101
  2. XIPAMIDE [Suspect]
     Indication: OEDEMA
     Dosage: 20 MG, DAILY
     Route: 048
     Dates: end: 20090101
  3. METAMIZOLE [Concomitant]
  4. ASPIRIN [Concomitant]
  5. MIRTALICH [Concomitant]
  6. TRAMAL                             /00599201/ [Concomitant]

REACTIONS (2)
  - DRUG INTERACTION [None]
  - TACHYARRHYTHMIA [None]
